FAERS Safety Report 10200953 (Version 3)
Quarter: 2014Q4

REPORT INFORMATION
  Report Type: Spontaneous
  Country: US (occurrence: US)
  Receive Date: 20140528
  Receipt Date: 20141001
  Transmission Date: 20150528
  Serious: No
  Sender: FDA-Public Use
  Company Number: US-ASTRAZENECA-2014SE34946

PATIENT
  Age: 66 Year
  Sex: Female
  Weight: 60.8 kg

DRUGS (1)
  1. SYMBICORT [Suspect]
     Active Substance: BUDESONIDE\FORMOTEROL FUMARATE DIHYDRATE
     Indication: CHRONIC OBSTRUCTIVE PULMONARY DISEASE
     Dosage: 160/4.5 MCG, 2 PUFFS, TWO TIMES A DAY
     Route: 055
     Dates: start: 2013

REACTIONS (4)
  - Retching [Unknown]
  - Drug dose omission [Unknown]
  - Drug effect increased [Unknown]
  - Circumstance or information capable of leading to medication error [Unknown]
